FAERS Safety Report 7234262 (Version 3)
Quarter: 2013Q1

REPORT INFORMATION
  Report Type: Spontaneous
  Country: US (occurrence: US)
  Receive Date: 20091230
  Receipt Date: 20130110
  Transmission Date: 20140127
  Serious: Yes (Hospitalization, Other)
  Sender: FDA-Public Use
  Company Number: US-AMGEN-QUU382157

PATIENT
  Age: 63 Year
  Sex: Female
  Weight: 55.4 kg

DRUGS (13)
  1. ENBREL [Suspect]
     Indication: RHEUMATOID ARTHRITIS
     Dosage: 50 MG, QWK
     Route: 058
     Dates: start: 20061101, end: 2009
  2. METHOTREXATE [Concomitant]
     Dosage: UNK MG, QWK FOR 15 YEARS
  3. PREDNISONE [Concomitant]
     Dosage: UNK
  4. RANITIDINE HYDROCHLORIDE [Concomitant]
     Dosage: UNK
  5. CYCLOBENZAPRINE HYDROCHLORIDE [Concomitant]
     Dosage: UNK
  6. LEVOTHRYROXINE SODIUM [Concomitant]
     Dosage: UNK
  7. PREMARIN WITH METHYLTESTOSTERONE [Concomitant]
     Dosage: UNK
  8. HYDROCODONE BITARTRATE + ACETAMINOPHEN [Concomitant]
     Dosage: UNK
  9. PROMETHAZINE [Concomitant]
     Dosage: UNK
  10. FERROUS SULFATE [Concomitant]
     Dosage: UNK
  11. ACETAMINOPHEN [Concomitant]
     Dosage: UNK UNK, QD
  12. TYLENOL PM [Concomitant]
     Dosage: UNK UNK, QD
  13. NAPROXEN SODIUM [Concomitant]
     Dosage: UNK UNK, PRN

REACTIONS (9)
  - Diverticulum [Unknown]
  - Small intestine ulcer [Unknown]
  - Blood iron decreased [Unknown]
  - Enteritis [Recovered/Resolved]
  - Bacterial infection [Not Recovered/Not Resolved]
  - Colitis microscopic [Not Recovered/Not Resolved]
  - Constipation [Not Recovered/Not Resolved]
  - Nausea [Not Recovered/Not Resolved]
  - Diarrhoea [Not Recovered/Not Resolved]
